FAERS Safety Report 9766892 (Version 2)
Quarter: 2014Q1

REPORT INFORMATION
  Report Type: Spontaneous
  Country: US (occurrence: US)
  Receive Date: 20131217
  Receipt Date: 20140204
  Transmission Date: 20141002
  Serious: No
  Sender: FDA-Public Use
  Company Number: US-BIOGENIDEC-2013BI119297

PATIENT
  Sex: Female

DRUGS (20)
  1. TECFIDERA [Suspect]
     Indication: MULTIPLE SCLEROSIS
     Route: 048
     Dates: start: 20131122
  2. TECFIDERA [Suspect]
     Indication: MULTIPLE SCLEROSIS
     Route: 048
     Dates: start: 20131122
  3. ABILITY [Concomitant]
  4. AMBIEN [Concomitant]
  5. ASPIRIN CHILDRENS [Concomitant]
  6. ATIVAN [Concomitant]
  7. CALCIUM+D+K [Concomitant]
  8. CLARITIN [Concomitant]
  9. COLACE [Concomitant]
  10. FENTANYL [Concomitant]
  11. GINKGO BILOBA [Concomitant]
  12. GINSENG [Concomitant]
  13. MAGNESIUM GLUCONATE [Concomitant]
  14. OXYCODONE HCL [Concomitant]
  15. PREMARIN [Concomitant]
  16. PRILOSEC [Concomitant]
  17. PROCHLORPERAZINE MALEATE [Concomitant]
  18. PROVIGIL [Concomitant]
  19. ZANAFLEX [Concomitant]
  20. ZOLOFT [Concomitant]

REACTIONS (4)
  - Asthenia [Unknown]
  - Nausea [Unknown]
  - Vomiting [Unknown]
  - Diarrhoea [Unknown]
